FAERS Safety Report 23776891 (Version 1)
Quarter: 2024Q2

REPORT INFORMATION
  Report Type: Other
  Country: US (occurrence: None)
  Receive Date: 20240424
  Receipt Date: 20240424
  Transmission Date: 20240716
  Serious: Yes (Other)
  Sender: FDA-Public Use
  Company Number: US-ROCHE-3548671

PATIENT
  Age: 62 Year
  Sex: Female

DRUGS (17)
  1. ENSPRYNG [Suspect]
     Active Substance: SATRALIZUMAB-MWGE
     Indication: Autoimmune disorder
     Route: 058
  2. ENSPRYNG [Suspect]
     Active Substance: SATRALIZUMAB-MWGE
  3. ENSPRYNG [Suspect]
     Active Substance: SATRALIZUMAB-MWGE
  4. ENSPRYNG [Suspect]
     Active Substance: SATRALIZUMAB-MWGE
  5. ENSPRYNG [Suspect]
     Active Substance: SATRALIZUMAB-MWGE
     Indication: Demyelination
  6. ENSPRYNG [Suspect]
     Active Substance: SATRALIZUMAB-MWGE
  7. ENSPRYNG [Suspect]
     Active Substance: SATRALIZUMAB-MWGE
  8. ENSPRYNG [Suspect]
     Active Substance: SATRALIZUMAB-MWGE
  9. UNSPECIFIED INGREDIENT [Concomitant]
     Active Substance: UNSPECIFIED INGREDIENT
  10. CRANBERRY [Concomitant]
     Active Substance: CRANBERRY
  11. GADOBUTROL [Concomitant]
     Active Substance: GADOBUTROL
  12. TRAZODONE [Concomitant]
     Active Substance: TRAZODONE HYDROCHLORIDE
  13. DESMOPRESSIN [Concomitant]
     Active Substance: DESMOPRESSIN
  14. ADDERALL [Concomitant]
     Active Substance: AMPHETAMINE ASPARTATE\AMPHETAMINE SULFATE\DEXTROAMPHETAMINE SACCHARATE\DEXTROAMPHETAMINE SULFATE
  15. DOXEPIN [Concomitant]
     Active Substance: DOXEPIN
  16. GABAPENTIN [Concomitant]
     Active Substance: GABAPENTIN
  17. HYDROMORPHONE [Concomitant]
     Active Substance: HYDROMORPHONE

REACTIONS (2)
  - Quadriplegia [Unknown]
  - Malaise [Unknown]
